FAERS Safety Report 8084490-1 (Version None)
Quarter: 2012Q1

REPORT INFORMATION
  Report Type: 
  Country: None (occurrence: None)
  Receive Date: 20120128
  Receipt Date: 20110323
  Transmission Date: 20120608
  Serious: No
  Sender: FDA-Public Use
  Company Number: US-ABBOTT-11P-163-0714219-00

PATIENT

DRUGS (16)
  1. OMEPRAZOLE [Concomitant]
     Indication: GASTROOESOPHAGEAL REFLUX DISEASE
  2. HUMIRA [Suspect]
     Indication: RHEUMATOID ARTHRITIS
     Dates: start: 20100901, end: 20110301
  3. CRESTOR [Concomitant]
     Indication: BLOOD CHOLESTEROL INCREASED
  4. MECLIZINE [Concomitant]
     Indication: PRODUCT USED FOR UNKNOWN INDICATION
  5. LEVOTHYROXINE SODIUM [Concomitant]
     Indication: HYPOTHYROIDISM
  6. CHLOROQUINE PHOSPHATE [Concomitant]
     Indication: PRODUCT USED FOR UNKNOWN INDICATION
  7. METHOTREXATE [Concomitant]
     Indication: RHEUMATOID ARTHRITIS
  8. NABUMETONE [Concomitant]
     Indication: RHEUMATOID ARTHRITIS
  9. FLONASE [Concomitant]
     Indication: HYPERSENSITIVITY
  10. LEUCOVORIN CALCIUM [Concomitant]
     Indication: RHEUMATOID ARTHRITIS
  11. DETROL [Concomitant]
     Indication: URINARY INCONTINENCE
  12. MS CONTIN [Concomitant]
     Indication: PAIN
  13. MORPHINE SULFATE [Concomitant]
     Indication: PAIN
  14. DOXEPIN [Concomitant]
     Indication: ANXIETY
  15. ZESTRIL [Concomitant]
     Indication: HYPERTENSION
  16. NULEV [Concomitant]
     Indication: SUPPLEMENTATION THERAPY

REACTIONS (3)
  - DIZZINESS [None]
  - VISION BLURRED [None]
  - PAIN IN EXTREMITY [None]
